FAERS Safety Report 21843169 (Version 1)
Quarter: 2023Q1

REPORT INFORMATION
  Report Type: Spontaneous
  Country: US (occurrence: US)
  Receive Date: 20230110
  Receipt Date: 20230110
  Transmission Date: 20230417
  Serious: No
  Sender: FDA-Public Use
  Company Number: US-UNITED THERAPEUTICS-UNT-2022-028985

PATIENT
  Sex: Male
  Weight: 72.562 kg

DRUGS (4)
  1. TYVASO DPI [Suspect]
     Active Substance: TREPROSTINIL
     Indication: Pulmonary arterial hypertension
     Dosage: UNK
     Dates: start: 20221102
  2. TYVASO DPI [Suspect]
     Active Substance: TREPROSTINIL
     Dosage: 48 ?G, QID
     Dates: start: 202211, end: 2022
  3. TYVASO DPI [Suspect]
     Active Substance: TREPROSTINIL
     Indication: Pulmonary arterial hypertension
     Dosage: UNK
  4. TYVASO DPI [Suspect]
     Active Substance: TREPROSTINIL
     Dosage: UNK

REACTIONS (3)
  - Cough [Unknown]
  - Eye irritation [Unknown]
  - Flushing [Unknown]

NARRATIVE: CASE EVENT DATE: 20220101
